FAERS Safety Report 14367201 (Version 1)
Quarter: 2018Q1

REPORT INFORMATION
  Report Type: Spontaneous
  Country: US (occurrence: US)
  Receive Date: 20180109
  Receipt Date: 20180109
  Transmission Date: 20180509
  Serious: No
  Sender: FDA-Public Use
  Company Number: US-JNJFOC-20171200324

PATIENT
  Age: 11 Month
  Sex: Female
  Weight: 9.98 kg

DRUGS (2)
  1. MOTRIN [Suspect]
     Active Substance: IBUPROFEN
     Indication: ACCIDENTAL EXPOSURE TO PRODUCT
     Dosage: LAST DOSE: 1:30 LAST NIGHT
     Route: 065
     Dates: start: 20171129, end: 20171129
  2. MOTRIN [Suspect]
     Active Substance: IBUPROFEN
     Route: 065

REACTIONS (2)
  - Accidental exposure to product [Unknown]
  - Failure of child resistant mechanism for pharmaceutical product [Unknown]

NARRATIVE: CASE EVENT DATE: 20171129
